FAERS Safety Report 16698434 (Version 1)
Quarter: 2019Q3

REPORT INFORMATION
  Report Type: Report from Study
  Country: DE (occurrence: DE)
  Receive Date: 20190813
  Receipt Date: 20190813
  Transmission Date: 20191004
  Serious: Yes (Other)
  Sender: FDA-Public Use
  Company Number: DE-JNJFOC-20190201942

PATIENT

DRUGS (1)
  1. DOXORUBICIN HYDROCHLORIDE. [Suspect]
     Active Substance: DOXORUBICIN HYDROCHLORIDE
     Indication: SARCOMA METASTATIC
     Dosage: FOR TOTAL OF 6 CYCLES
     Route: 065

REACTIONS (8)
  - Febrile neutropenia [Unknown]
  - Alopecia [Unknown]
  - Constipation [Unknown]
  - Neutropenia [Unknown]
  - Nausea [Unknown]
  - Product use in unapproved indication [Unknown]
  - Off label use [Unknown]
  - Fatigue [Unknown]
